FAERS Safety Report 18171056 (Version 4)
Quarter: 2020Q3

REPORT INFORMATION
  Report Type: Spontaneous
  Country: DK (occurrence: DK)
  Receive Date: 20200819
  Receipt Date: 20200831
  Transmission Date: 20201103
  Serious: Yes (Other)
  Sender: FDA-Public Use
  Company Number: DK-PFIZER INC-2020319251

PATIENT
  Age: 72 Year
  Sex: Female

DRUGS (2)
  1. ENCORAFENIB [Suspect]
     Active Substance: ENCORAFENIB
     Indication: METASTATIC MALIGNANT MELANOMA
     Dosage: UNK
     Route: 065
     Dates: start: 201908
  2. BINIMETINIB [Suspect]
     Active Substance: BINIMETINIB
     Indication: METASTATIC MALIGNANT MELANOMA
     Dosage: UNK
     Route: 065
     Dates: start: 201908

REACTIONS (1)
  - Serous retinal detachment [Recovered/Resolved]
